FAERS Safety Report 5064545-6 (Version None)
Quarter: 2006Q3

REPORT INFORMATION
  Report Type: 
  Country: None (occurrence: None)
  Receive Date: 20060706
  Receipt Date: 20060329
  Transmission Date: 20061208
  Serious: No
  Sender: FDA-Public Use
  Company Number: 200611946BWH

PATIENT
  Age: 57 Year
  Sex: Male

DRUGS (2)
  1. LEVITRA [Suspect]
     Indication: ERECTILE DYSFUNCTION
     Dosage: 2.5 MG, OW, ORAL
     Route: 048
     Dates: start: 20060319
  2. TAMSULOSIN HCL [Concomitant]

REACTIONS (2)
  - DISTURBANCE IN SEXUAL AROUSAL [None]
  - ERECTILE DYSFUNCTION [None]
